FAERS Safety Report 12394121 (Version 2)
Quarter: 2016Q3

REPORT INFORMATION
  Report Type: Spontaneous
  Country: NL (occurrence: NL)
  Receive Date: 20160523
  Receipt Date: 20160719
  Transmission Date: 20161109
  Serious: Yes (Other)
  Sender: FDA-Public Use
  Company Number: NL-PFIZER INC-2016265527

PATIENT
  Sex: Male

DRUGS (2)
  1. XANAX [Suspect]
     Active Substance: ALPRAZOLAM
     Dosage: 1 MG, UNK
  2. XANAX [Suspect]
     Active Substance: ALPRAZOLAM
     Dosage: 2 MG, UNK

REACTIONS (5)
  - Apparent death [Unknown]
  - Product quality issue [Unknown]
  - Thinking abnormal [Unknown]
  - Anger [Unknown]
  - Aggression [Unknown]
